FAERS Safety Report 18366713 (Version 4)
Quarter: 2021Q2

REPORT INFORMATION
  Report Type: Spontaneous
  Country: US (occurrence: US)
  Receive Date: 20201009
  Receipt Date: 20210427
  Transmission Date: 20210717
  Serious: Yes (Congenital Anomaly, Other)
  Sender: FDA-Public Use
  Company Number: NVSC2020US273252

PATIENT
  Sex: Male

DRUGS (2)
  1. ZOFRAN [Suspect]
     Active Substance: ONDANSETRON HYDROCHLORIDE
     Indication: FOETAL EXPOSURE DURING PREGNANCY
     Dosage: MOTHER DOSE: 4 MG, Q6H
     Route: 064
  2. ONDANSETRONE RANBAXY [Suspect]
     Active Substance: ONDANSETRON HYDROCHLORIDE
     Indication: FOETAL EXPOSURE DURING PREGNANCY
     Dosage: MOTHER DOSE: 4MG, UNK
     Route: 064

REACTIONS (41)
  - Congenital aortic stenosis [Unknown]
  - Shone complex [Unknown]
  - Left atrial enlargement [Unknown]
  - Rhinorrhoea [Unknown]
  - Bicuspid aortic valve [Unknown]
  - Atrial septal defect [Unknown]
  - Tricuspid valve incompetence [Unknown]
  - Cardiac murmur [Unknown]
  - Decreased appetite [Unknown]
  - Skin laceration [Unknown]
  - Influenza [Unknown]
  - Otitis media acute [Unknown]
  - Left-to-right cardiac shunt [Unknown]
  - Acarodermatitis [Unknown]
  - Epistaxis [Unknown]
  - Rash [Unknown]
  - Pruritus [Unknown]
  - Heart disease congenital [Unknown]
  - Pericardial effusion [Unknown]
  - Foetal exposure during pregnancy [Unknown]
  - Jaundice neonatal [Unknown]
  - Cardiomegaly [Unknown]
  - Cough [Unknown]
  - Head injury [Unknown]
  - Fall [Unknown]
  - Arrhythmia supraventricular [Unknown]
  - Vomiting [Unknown]
  - Right ventricular hypertrophy [Unknown]
  - Coarctation of the aorta [Unknown]
  - Injury [Unknown]
  - Arthralgia [Unknown]
  - Pulmonary hypertension [Unknown]
  - Pulmonary oedema [Unknown]
  - Oral candidiasis [Unknown]
  - Pyrexia [Unknown]
  - Fatigue [Unknown]
  - Left ventricular hypertrophy [Unknown]
  - Aortic valve incompetence [Unknown]
  - Upper limb fracture [Unknown]
  - Mitral valve stenosis [Unknown]
  - Diarrhoea [Unknown]
